FAERS Safety Report 5527288-8 (Version None)
Quarter: 2007Q4

REPORT INFORMATION
  Report Type: 
  Country: None (occurrence: None)
  Receive Date: 20071128
  Receipt Date: 20071122
  Transmission Date: 20080405
  Serious: Yes (Hospitalization)
  Sender: FDA-Public Use
  Company Number: B0463505A

PATIENT
  Age: 67 Year
  Sex: Female
  Weight: 100 kg

DRUGS (12)
  1. AUGMENTIN '250' [Suspect]
     Dosage: 1G THREE TIMES PER DAY
     Route: 048
     Dates: start: 20070215, end: 20070223
  2. SOLUPRED [Suspect]
     Route: 048
     Dates: start: 20070215, end: 20070219
  3. PREVISCAN [Suspect]
     Route: 048
  4. GLUCOPHAGE [Concomitant]
     Indication: DIABETES MELLITUS
     Dosage: 850MG PER DAY
     Route: 048
     Dates: start: 20061208
  5. COOLMETEC [Concomitant]
     Indication: ESSENTIAL HYPERTENSION
     Dosage: 1UNIT PER DAY
     Route: 048
     Dates: start: 20061208
  6. AMIODARONE HCL [Concomitant]
     Dosage: 200MG TWICE PER DAY
     Route: 048
  7. TAHOR [Concomitant]
     Dosage: 1UNIT PER DAY
  8. TEGRETOL [Concomitant]
     Dosage: 3UNIT PER DAY
  9. MONICOR LP [Concomitant]
     Dosage: 1UNIT PER DAY
  10. EUPRESSYL [Concomitant]
     Dosage: 2UNIT PER DAY
  11. ZANIDIP [Concomitant]
     Dosage: 1UNIT PER DAY
  12. AEROSOL [Concomitant]
     Route: 055
     Dates: start: 20070215

REACTIONS (7)
  - ANAEMIA [None]
  - DRUG INTERACTION [None]
  - GASTROINTESTINAL HAEMORRHAGE [None]
  - INTERNATIONAL NORMALISED RATIO INCREASED [None]
  - MELAENA [None]
  - PALLOR [None]
  - PROTHROMBIN LEVEL DECREASED [None]
